FAERS Safety Report 6465028-9 (Version None)
Quarter: 2009Q4

REPORT INFORMATION
  Report Type: 
  Country: None (occurrence: None)
  Receive Date: 20091201
  Receipt Date: 20091118
  Transmission Date: 20100525
  Serious: Yes (Hospitalization, Other)
  Sender: FDA-Public Use
  Company Number: JP-PFIZER INC-2009282220

PATIENT
  Age: 67 Year
  Sex: Female

DRUGS (2)
  1. SOLANAX [Suspect]
     Dosage: UNK
     Route: 048
  2. BROTIZOLAM [Concomitant]

REACTIONS (4)
  - ABNORMAL BEHAVIOUR [None]
  - DEMENTIA WITH LEWY BODIES [None]
  - DRUG DEPENDENCE [None]
  - SUICIDAL IDEATION [None]
